FAERS Safety Report 12935394 (Version 1)
Quarter: 2016Q4

REPORT INFORMATION
  Report Type: Spontaneous
  Country: US (occurrence: US)
  Receive Date: 20161114
  Receipt Date: 20161114
  Transmission Date: 20170207
  Serious: No
  Sender: FDA-Public Use
  Company Number: US-JAZZ-2016-US-018703

PATIENT
  Sex: Female

DRUGS (53)
  1. TEMAZEPAM. [Concomitant]
     Active Substance: TEMAZEPAM
  2. HYDROXYZINE HCL [Concomitant]
     Active Substance: HYDROXYZINE HYDROCHLORIDE
  3. FLAGYL [Concomitant]
     Active Substance: METRONIDAZOLE\METRONIDAZOLE HYDROCHLORIDE
  4. LASIX [Concomitant]
     Active Substance: FUROSEMIDE
  5. MIRVASO [Concomitant]
     Active Substance: BRIMONIDINE TARTRATE
  6. VALTREX [Concomitant]
     Active Substance: VALACYCLOVIR HYDROCHLORIDE
  7. VITAMIN D3 [Concomitant]
     Active Substance: CHOLECALCIFEROL
  8. XYREM [Suspect]
     Active Substance: SODIUM OXYBATE
     Dosage: 4.5 G, BID
     Route: 048
     Dates: start: 201402
  9. PLAQUENIL                          /00072602/ [Concomitant]
     Active Substance: HYDROXYCHLOROQUINE DIPHOSPHATE
  10. ZANTAC [Concomitant]
     Active Substance: RANITIDINE HYDROCHLORIDE
  11. FISH OIL + VITAMIN D3 [Concomitant]
  12. TRAMADOL ER [Concomitant]
     Active Substance: TRAMADOL HYDROCHLORIDE
  13. CLARITIN [Concomitant]
     Active Substance: LORATADINE
  14. ATORVASTATIN [Concomitant]
     Active Substance: ATORVASTATIN
  15. BENADRYL ALLERGY [Concomitant]
     Active Substance: DIPHENHYDRAMINE HYDROCHLORIDE
  16. CIPRO [Concomitant]
     Active Substance: CIPROFLOXACIN HYDROCHLORIDE
  17. FOCALIN [Concomitant]
     Active Substance: DEXMETHYLPHENIDATE HYDROCHLORIDE
  18. LIDOCAINE HCL [Concomitant]
     Active Substance: LIDOCAINE HYDROCHLORIDE
  19. MOMETASONE FUROATE. [Concomitant]
     Active Substance: MOMETASONE FUROATE
  20. NEXIUM [Concomitant]
     Active Substance: ESOMEPRAZOLE MAGNESIUM
  21. NYSTATIN AND TRIAMCINOLONE [Concomitant]
     Active Substance: NYSTATIN\TRIAMCINOLONE ACETONIDE
  22. PERCOCET                           /00446701/ [Concomitant]
     Active Substance: ACETAMINOPHEN\OXYCODONE HYDROCHLORIDE\OXYCODONE TEREPHTHALATE
  23. ALLEGRA ALLERGY [Concomitant]
     Active Substance: FEXOFENADINE HYDROCHLORIDE
  24. ORENCIA [Concomitant]
     Active Substance: ABATACEPT
  25. PRED FORTE [Concomitant]
     Active Substance: PREDNISOLONE ACETATE
  26. FOLIC ACID. [Concomitant]
     Active Substance: FOLIC ACID
  27. ASPIRIN                            /00002701/ [Concomitant]
     Active Substance: ASPIRIN
  28. FLUOXETINE HCL [Concomitant]
     Active Substance: FLUOXETINE HYDROCHLORIDE
  29. TRAMADOL HCL [Concomitant]
     Active Substance: TRAMADOL HYDROCHLORIDE
  30. XYREM [Suspect]
     Active Substance: SODIUM OXYBATE
     Dosage: DOSE ADJUSTMENTS
     Route: 048
     Dates: start: 201401, end: 201402
  31. TRAZODONE [Concomitant]
     Active Substance: TRAZODONE HYDROCHLORIDE
  32. VESICARE [Concomitant]
     Active Substance: SOLIFENACIN SUCCINATE
  33. ARMOUR THYROID [Concomitant]
     Active Substance: THYROID, PORCINE
  34. HYDROCORTISONE. [Concomitant]
     Active Substance: HYDROCORTISONE
  35. MOBIC [Concomitant]
     Active Substance: MELOXICAM
  36. PREMARIN [Concomitant]
     Active Substance: ESTROGENS, CONJUGATED
  37. METHOTREXATE. [Concomitant]
     Active Substance: METHOTREXATE
  38. COMBIGAN [Concomitant]
     Active Substance: BRIMONIDINE TARTRATE\TIMOLOL MALEATE
  39. RESTASIS [Concomitant]
     Active Substance: CYCLOSPORINE
  40. FLEXERIL [Concomitant]
     Active Substance: CYCLOBENZAPRINE HYDROCHLORIDE
  41. ACTICLATE [Concomitant]
     Active Substance: DOXYCYCLINE HYCLATE
  42. MIRAPEX [Concomitant]
     Active Substance: PRAMIPEXOLE DIHYDROCHLORIDE
  43. TIZANIDINE HCL [Concomitant]
     Active Substance: TIZANIDINE HYDROCHLORIDE
  44. ZYRTEC [Concomitant]
     Active Substance: CETIRIZINE HYDROCHLORIDE
  45. LYRICA [Concomitant]
     Active Substance: PREGABALIN
  46. CLONAZEPAM. [Concomitant]
     Active Substance: CLONAZEPAM
  47. MULTIVITAMINS                      /00116001/ [Concomitant]
  48. PROAIR HFA [Concomitant]
     Active Substance: ALBUTEROL SULFATE
  49. XYREM [Suspect]
     Active Substance: SODIUM OXYBATE
     Indication: HYPERSOMNIA
     Dosage: 2.25 G, BID
     Route: 048
     Dates: start: 201401, end: 201401
  50. CYMBALTA [Concomitant]
     Active Substance: DULOXETINE HYDROCHLORIDE
  51. LOSARTAN POTASSIUM. [Concomitant]
     Active Substance: LOSARTAN POTASSIUM
  52. NORITATE [Concomitant]
     Active Substance: METRONIDAZOLE
  53. VITAMIN D2 [Concomitant]
     Active Substance: ERGOCALCIFEROL

REACTIONS (2)
  - Pre-existing condition improved [Unknown]
  - Therapeutic response unexpected [Unknown]
